FAERS Safety Report 15363457 (Version 2)
Quarter: 2018Q4

REPORT INFORMATION
  Report Type: Report from Study
  Country: ZA (occurrence: ZA)
  Receive Date: 20180907
  Receipt Date: 20181019
  Transmission Date: 20190204
  Serious: Yes (Hospitalization, Other)
  Sender: FDA-Public Use
  Company Number: ZA-SA-2018SA237008

PATIENT
  Age: 77 Year
  Sex: Male

DRUGS (2)
  1. INSULIN GLARGINE [Suspect]
     Active Substance: INSULIN GLARGINE
     Indication: TYPE 2 DIABETES MELLITUS
     Dosage: 30 U, QD (BREAKFAST)
     Dates: start: 20130713
  2. OPTISULIN (INSULIN GLARGINE) [Suspect]
     Active Substance: INSULIN GLARGINE
     Indication: TYPE 2 DIABETES MELLITUS
     Dosage: 38 UNK
     Dates: start: 20180827

REACTIONS (5)
  - Drug ineffective [Unknown]
  - Intentional product misuse [Unknown]
  - Infection [Not Recovered/Not Resolved]
  - Overdose [Unknown]
  - Wound sepsis [Not Recovered/Not Resolved]

NARRATIVE: CASE EVENT DATE: 20180815
